FAERS Safety Report 14423401 (Version 1)
Quarter: 2018Q1

REPORT INFORMATION
  Report Type: Spontaneous
  Country: US (occurrence: US)
  Receive Date: 20180123
  Receipt Date: 20180123
  Transmission Date: 20180509
  Serious: No
  Sender: FDA-Public Use
  Company Number: US-PFIZER INC-2018026866

PATIENT
  Age: 45 Year
  Sex: Male
  Weight: 70.31 kg

DRUGS (5)
  1. METHADONE [Concomitant]
     Active Substance: METHADONE HYDROCHLORIDE
     Indication: NEURALGIA
     Dosage: 5 MG, 3X/DAY
     Route: 048
  2. LYRICA [Suspect]
     Active Substance: PREGABALIN
     Dosage: 100 MG, 3X/DAY
  3. PERCOCET [Concomitant]
     Active Substance: ACETAMINOPHEN\OXYCODONE HYDROCHLORIDE
     Indication: NEURALGIA
     Dosage: 1 DF, 4X/DAY, [OXYCODONE HYDROCHLORIDE 10]/ [PARACETAMOL 325]
     Route: 048
  4. LYRICA [Suspect]
     Active Substance: PREGABALIN
     Indication: DIABETIC NEUROPATHY
     Dosage: 50 MG, 3X/DAY
     Route: 048
  5. VERAPAMIL ER [Concomitant]
     Active Substance: VERAPAMIL HYDROCHLORIDE
     Indication: SUPRAVENTRICULAR TACHYCARDIA
     Dosage: 180 MG, 1X/DAY
     Route: 048
     Dates: start: 1989

REACTIONS (4)
  - Drug effect incomplete [Unknown]
  - Road traffic accident [Unknown]
  - Limb injury [Recovered/Resolved with Sequelae]
  - Joint range of motion decreased [Unknown]

NARRATIVE: CASE EVENT DATE: 20150904
